FAERS Safety Report 9522367 (Version 1)
Quarter: 2013Q1

REPORT INFORMATION
  Report Type: Spontaneous
  Country: US (occurrence: None)
  Receive Date: 20130305
  Receipt Date: 20130305
  Transmission Date: 20140127
  Serious: Yes (Hospitalization, Other)
  Sender: FDA-Public Use
  Company Number: 163-21880-12031687

PATIENT
  Age: 78 Year
  Sex: Male

DRUGS (11)
  1. REVLIMID [Suspect]
     Indication: MANTLE CELL LYMPHOMA
     Dosage: 10 MG, QDX 21/28 DAYS, PO
     Route: 048
     Dates: start: 20120208, end: 20120307
  2. FUROSEMIDE (FUROSEMIDE) [Concomitant]
  3. ATENOLOL (ATENOLOL) [Concomitant]
  4. ASA (ACETYLSALICYLIC ACID) [Concomitant]
  5. INSULIN REGULAR (INSULIN) [Concomitant]
  6. INSULIN NPH (INSULIN INJECTION, IISOPHANE) [Concomitant]
  7. GLIPIZIDE (GLIPIZIDE) [Concomitant]
  8. OMEPRAZOLE (OMEPRAZOLE) [Concomitant]
  9. CYANOCOBALAMIN (CYANOCOBALAMIN) [Concomitant]
  10. FERROUS GLUCONATE (FERROUS GLUCONATE) [Concomitant]
  11. THIAMINE (THIAIMINE) [Concomitant]

REACTIONS (4)
  - Pneumonia [None]
  - Chills [None]
  - Cough [None]
  - Neutrophil count decreased [None]
